FAERS Safety Report 23700761 (Version 1)
Quarter: 2024Q2

REPORT INFORMATION
  Report Type: Spontaneous
  Country: CA (occurrence: CA)
  Receive Date: 20240403
  Receipt Date: 20240403
  Transmission Date: 20240716
  Serious: Yes (Other)
  Sender: FDA-Public Use
  Company Number: CA-TAKEDA-2021TJP006850

PATIENT
  Age: 76 Year
  Sex: Female

DRUGS (278)
  1. LANSOPRAZOLE [Suspect]
     Active Substance: LANSOPRAZOLE
     Indication: Product used for unknown indication
     Dosage: UNK (DELAYED RELEASE CAPSULE)UNK
     Route: 048
  2. LANSOPRAZOLE [Suspect]
     Active Substance: LANSOPRAZOLE
     Indication: Product used for unknown indication
     Dosage: DOSAGE TEXT: UNK (DELAYED RELEASE CAPSULE)
     Route: 065
  3. LANSOPRAZOLE [Suspect]
     Active Substance: LANSOPRAZOLE
     Indication: Product used for unknown indication
     Dosage: UNK
     Route: 065
  4. LANSOPRAZOLE [Suspect]
     Active Substance: LANSOPRAZOLE
     Indication: Product used for unknown indication
     Dosage: DOSAGE TEXT: UNK (PROLONGED-RELEASE CAPSULE)
     Route: 065
  5. LANSOPRAZOLE [Suspect]
     Active Substance: LANSOPRAZOLE
     Indication: Product used for unknown indication
     Dosage: UNK (DELAYED RELEASE CAPSULE)
     Route: 048
  6. LANSOPRAZOLE [Suspect]
     Active Substance: LANSOPRAZOLE
     Indication: Product used for unknown indication
     Dosage: DOSAGE TEXT: UNK
     Route: 065
  7. LANSOPRAZOLE [Suspect]
     Active Substance: LANSOPRAZOLE
     Indication: Product used for unknown indication
     Dosage: UNK (ORODISPERSIBLE TABLET)
     Route: 048
  8. LANSOPRAZOLE [Suspect]
     Active Substance: LANSOPRAZOLE
     Indication: Product used for unknown indication
     Dosage: DOSAGE TEXT: UNK (CAPSULE)
     Route: 048
  9. LANSOPRAZOLE [Suspect]
     Active Substance: LANSOPRAZOLE
     Indication: Product used for unknown indication
     Dosage: UNK (PROLONGED-RELEASE CAPSULE)
     Route: 065
  10. LANSOPRAZOLE [Suspect]
     Active Substance: LANSOPRAZOLE
     Indication: Product used for unknown indication
     Dosage: DOSAGE TEXT: UNK (DELAYED RELEASE CAPSULE)UNK
     Route: 048
  11. LANSOPRAZOLE [Suspect]
     Active Substance: LANSOPRAZOLE
     Indication: Product used for unknown indication
     Dosage: UNK (CAPSULE)
     Route: 048
  12. LANSOPRAZOLE [Suspect]
     Active Substance: LANSOPRAZOLE
     Indication: Product used for unknown indication
     Dosage: DOSAGE TEXT: UNK (DELAYED RELEASE TABLET)
     Route: 048
  13. LANSOPRAZOLE [Suspect]
     Active Substance: LANSOPRAZOLE
     Indication: Product used for unknown indication
     Dosage: UNK
     Route: 065
  14. LANSOPRAZOLE [Suspect]
     Active Substance: LANSOPRAZOLE
     Indication: Product used for unknown indication
     Dosage: DOSAGE TEXT: UNK (ORODISPERSIBLE TABLET)
     Route: 048
  15. LANSOPRAZOLE [Suspect]
     Active Substance: LANSOPRAZOLE
     Indication: Product used for unknown indication
     Dosage: UNK (TABLET)
     Route: 048
  16. LANSOPRAZOLE [Suspect]
     Active Substance: LANSOPRAZOLE
     Indication: Product used for unknown indication
     Dosage: DOSAGE TEXT: UNK (TABLET)
     Route: 048
  17. LANSOPRAZOLE [Suspect]
     Active Substance: LANSOPRAZOLE
     Indication: Product used for unknown indication
     Dosage: UNK (DELAYED RELEASE TABLET)
     Route: 048
  18. LANSOPRAZOLE [Suspect]
     Active Substance: LANSOPRAZOLE
     Indication: Product used for unknown indication
     Dosage: DOSAGE TEXT: UNK
     Route: 065
  19. MONTELUKAST [Suspect]
     Active Substance: MONTELUKAST SODIUM
     Indication: Product used for unknown indication
     Dosage: UNK
     Route: 065
  20. MONTELUKAST [Suspect]
     Active Substance: MONTELUKAST SODIUM
     Indication: Product used for unknown indication
     Dosage: DOSAGE TEXT: UNK(TABLET)
     Route: 065
  21. MONTELUKAST [Suspect]
     Active Substance: MONTELUKAST SODIUM
     Indication: Product used for unknown indication
     Dosage: UNK
     Route: 048
  22. MONTELUKAST [Suspect]
     Active Substance: MONTELUKAST SODIUM
     Indication: Product used for unknown indication
     Dosage: DOSAGE TEXT: UNK
     Route: 065
  23. MONTELUKAST [Suspect]
     Active Substance: MONTELUKAST SODIUM
     Indication: Product used for unknown indication
     Dosage: UNK(TABLET)
     Route: 065
  24. MONTELUKAST [Suspect]
     Active Substance: MONTELUKAST SODIUM
     Indication: Product used for unknown indication
     Dosage: DOSAGE TEXT: UNK
     Route: 065
  25. MONTELUKAST [Suspect]
     Active Substance: MONTELUKAST SODIUM
     Indication: Product used for unknown indication
     Dosage: DOSAGE TEXT: UNK
     Route: 065
  26. MONTELUKAST [Suspect]
     Active Substance: MONTELUKAST SODIUM
     Indication: Product used for unknown indication
     Dosage: DOSAGE TEXT: UNK
     Route: 065
  27. MONTELUKAST [Suspect]
     Active Substance: MONTELUKAST SODIUM
     Indication: Product used for unknown indication
     Dosage: DOSAGE TEXT: UNK
     Route: 048
  28. MONTELUKAST [Suspect]
     Active Substance: MONTELUKAST SODIUM
     Indication: Product used for unknown indication
     Dosage: DOSAGE TEXT: UNK
     Route: 065
  29. MONTELUKAST [Suspect]
     Active Substance: MONTELUKAST SODIUM
     Indication: Product used for unknown indication
     Dosage: DOSAGE TEXT: UNK
     Route: 065
  30. MONTELUKAST [Suspect]
     Active Substance: MONTELUKAST SODIUM
     Indication: Product used for unknown indication
     Dosage: DOSAGE TEXT: UNK
     Route: 048
  31. PREDNISONE [Suspect]
     Active Substance: PREDNISONE
     Indication: Product used for unknown indication
     Dosage: UNK
     Route: 055
  32. PREDNISONE [Suspect]
     Active Substance: PREDNISONE
     Indication: Product used for unknown indication
     Dosage: DOSAGE TEXT: UNK
     Route: 065
  33. PREDNISONE [Suspect]
     Active Substance: PREDNISONE
     Indication: Product used for unknown indication
     Dosage: UNK
     Route: 065
  34. PREDNISONE [Suspect]
     Active Substance: PREDNISONE
     Indication: Product used for unknown indication
     Dosage: DOSAGE TEXT: UNK
     Route: 055
  35. PREDNISONE [Suspect]
     Active Substance: PREDNISONE
     Indication: Product used for unknown indication
     Dosage: DOSAGE TEXT: UNK
     Route: 065
  36. PREDNISONE [Suspect]
     Active Substance: PREDNISONE
     Indication: Product used for unknown indication
     Dosage: DOSAGE TEXT: UNK
     Route: 065
  37. PREDNISONE [Suspect]
     Active Substance: PREDNISONE
     Indication: Product used for unknown indication
     Dosage: DOSAGE TEXT: UNK
     Route: 065
  38. ROPINIROLE [Suspect]
     Active Substance: ROPINIROLE
     Indication: Product used for unknown indication
     Dosage: UNK HYDROCHLORIDE
     Route: 065
  39. ROPINIROLE [Suspect]
     Active Substance: ROPINIROLE
     Indication: Product used for unknown indication
     Dosage: DOSAGE TEXT: UNK (TABLET)
     Route: 048
  40. ROPINIROLE [Suspect]
     Active Substance: ROPINIROLE
     Indication: Product used for unknown indication
     Dosage: DOSAGE TEXT: 0.25 MILLIGRAM
     Route: 065
  41. ROPINIROLE [Suspect]
     Active Substance: ROPINIROLE
     Indication: Product used for unknown indication
     Dosage: DOSAGE TEXT: 0.25 MG (FILM-COATED TABLET)
     Route: 048
  42. ROPINIROLE [Suspect]
     Active Substance: ROPINIROLE
     Indication: Product used for unknown indication
     Dosage: UNK (TABLET)
     Route: 048
  43. ROPINIROLE [Suspect]
     Active Substance: ROPINIROLE
     Indication: Product used for unknown indication
     Dosage: DOSAGE TEXT: UNK
     Route: 065
  44. ROPINIROLE [Suspect]
     Active Substance: ROPINIROLE
     Indication: Product used for unknown indication
     Dosage: UNK
     Route: 048
  45. ROPINIROLE [Suspect]
     Active Substance: ROPINIROLE
     Indication: Product used for unknown indication
     Dosage: DOSAGE TEXT: UNK
     Route: 065
  46. ROPINIROLE [Suspect]
     Active Substance: ROPINIROLE
     Indication: Product used for unknown indication
     Dosage: DOSAGE TEXT: 0.25 MILLIGRAM
     Route: 065
  47. ROPINIROLE [Suspect]
     Active Substance: ROPINIROLE
     Indication: Product used for unknown indication
     Dosage: DOSAGE TEXT: UNK
     Route: 048
  48. ROPINIROLE [Suspect]
     Active Substance: ROPINIROLE
     Indication: Product used for unknown indication
     Dosage: DOSAGE TEXT: 0.25 MILLIGRAM
     Route: 065
  49. ROPINIROLE [Suspect]
     Active Substance: ROPINIROLE
     Indication: Product used for unknown indication
     Dosage: DOSAGE TEXT: 0.25 MILLIGRAM
     Route: 048
  50. ROPINIROLE [Suspect]
     Active Substance: ROPINIROLE
     Indication: Product used for unknown indication
     Dosage: DOSAGE TEXT: 0.25 MILLIGRAM
     Route: 065
  51. ROPINIROLE [Suspect]
     Active Substance: ROPINIROLE
     Indication: Product used for unknown indication
     Dosage: DOSAGE TEXT: UNK
     Route: 048
  52. INVOKAMET [Suspect]
     Active Substance: CANAGLIFLOZIN\METFORMIN HYDROCHLORIDE
     Indication: Type 2 diabetes mellitus
     Dosage: UNK
     Route: 048
  53. ROSUVASTATIN [Suspect]
     Active Substance: ROSUVASTATIN
     Indication: Product used for unknown indication
     Dosage: DOSAGE TEXT: UNK
     Route: 065
  54. ROSUVASTATIN [Suspect]
     Active Substance: ROSUVASTATIN
     Indication: Product used for unknown indication
     Dosage: DOSAGE TEXT: UNK (TABLE)
     Route: 048
  55. ROSUVASTATIN [Suspect]
     Active Substance: ROSUVASTATIN
     Indication: Product used for unknown indication
     Dosage: DOSAGE TEXT: UNK (TABLE)
     Route: 065
  56. ROSUVASTATIN [Suspect]
     Active Substance: ROSUVASTATIN
     Indication: Product used for unknown indication
     Dosage: DOSAGE TEXT: UNK (FILM-COATED TABLET)
     Route: 048
  57. ROSUVASTATIN [Suspect]
     Active Substance: ROSUVASTATIN
     Indication: Product used for unknown indication
     Dosage: DOSAGE TEXT: NK (FILM-COATED TABLET)
     Route: 065
  58. ROSUVASTATIN [Suspect]
     Active Substance: ROSUVASTATIN
     Indication: Product used for unknown indication
     Dosage: DOSAGE TEXT: UNK
     Route: 065
  59. ROSUVASTATIN [Suspect]
     Active Substance: ROSUVASTATIN
     Indication: Product used for unknown indication
     Dosage: DOSAGE TEXT: UNK
     Route: 048
  60. BUDESONIDE [Suspect]
     Active Substance: BUDESONIDE
     Indication: Product used for unknown indication
     Dosage: UNK
     Route: 048
  61. BUDESONIDE [Suspect]
     Active Substance: BUDESONIDE
     Indication: Product used for unknown indication
     Dosage: DOSAGE TEXT: UNK
     Route: 055
  62. BUDESONIDE [Suspect]
     Active Substance: BUDESONIDE
     Indication: Product used for unknown indication
     Dosage: UNK (PROLONGED-RELEASE TABLET)
     Route: 055
  63. BUDESONIDE [Suspect]
     Active Substance: BUDESONIDE
     Indication: Product used for unknown indication
     Dosage: DOSAGE TEXT: UNK
     Route: 055
  64. BUDESONIDE [Suspect]
     Active Substance: BUDESONIDE
     Indication: Product used for unknown indication
     Dosage: UNK
     Route: 065
  65. BUDESONIDE [Suspect]
     Active Substance: BUDESONIDE
     Indication: Product used for unknown indication
     Dosage: DOSAGE TEXT: UNK
     Route: 065
  66. BUDESONIDE [Suspect]
     Active Substance: BUDESONIDE
     Indication: Product used for unknown indication
     Dosage: DOSAGE TEXT: UNK (PROLONGED-RELEASE TABLET)
     Route: 048
  67. BUDESONIDE [Suspect]
     Active Substance: BUDESONIDE
     Indication: Product used for unknown indication
     Dosage: DOSAGE TEXT: UNK
     Route: 050
  68. JANUVIA [Suspect]
     Active Substance: SITAGLIPTIN PHOSPHATE
     Indication: Product used for unknown indication
     Dosage: UNK
     Route: 065
  69. ALBUTEROL SULFATE [Suspect]
     Active Substance: ALBUTEROL SULFATE
     Indication: Product used for unknown indication
     Dosage: DOSAGE TEXT: UNK
     Route: 065
  70. ALBUTEROL SULFATE [Suspect]
     Active Substance: ALBUTEROL SULFATE
     Indication: Product used for unknown indication
     Dosage: DOSAGE TEXT: UNK
     Route: 065
  71. FERROUS SULFATE [Suspect]
     Active Substance: FERROUS SULFATE
     Indication: Product used for unknown indication
     Dosage: DOSAGE TEXT: UNK
     Route: 065
  72. FERROUS SULFATE [Suspect]
     Active Substance: FERROUS SULFATE
     Indication: Product used for unknown indication
     Dosage: UNK (NOT SPECIFIED)
     Route: 065
  73. FERROUS SULFATE [Suspect]
     Active Substance: FERROUS SULFATE
     Indication: Product used for unknown indication
     Dosage: DOSAGE TEXT: UNK (NOT SPECIFIED)
     Route: 065
  74. LEVOTHYROXINE SODIUM [Suspect]
     Active Substance: LEVOTHYROXINE SODIUM
     Indication: Product used for unknown indication
     Dosage: UNK
     Route: 005
  75. LEVOTHYROXINE SODIUM [Suspect]
     Active Substance: LEVOTHYROXINE SODIUM
     Indication: Product used for unknown indication
     Dosage: DOSAGE TEXT: UNK
     Route: 048
  76. LEVOTHYROXINE SODIUM [Suspect]
     Active Substance: LEVOTHYROXINE SODIUM
     Indication: Product used for unknown indication
     Dosage: UNK
     Route: 048
  77. LEVOTHYROXINE SODIUM [Suspect]
     Active Substance: LEVOTHYROXINE SODIUM
     Indication: Product used for unknown indication
     Dosage: DOSAGE TEXT: UNK
     Route: 005
  78. LEVOTHYROXINE SODIUM [Suspect]
     Active Substance: LEVOTHYROXINE SODIUM
     Indication: Product used for unknown indication
     Dosage: DOSAGE TEXT: UNK
     Route: 048
  79. BUDESONIDE\FORMOTEROL FUMARATE [Suspect]
     Active Substance: BUDESONIDE\FORMOTEROL FUMARATE
     Indication: Product used for unknown indication
     Dosage: UNK
     Route: 065
  80. BUDESONIDE\FORMOTEROL FUMARATE [Suspect]
     Active Substance: BUDESONIDE\FORMOTEROL FUMARATE
     Indication: Product used for unknown indication
     Dosage: DOSAGE TEXT: UNK
     Route: 055
  81. BUDESONIDE\FORMOTEROL FUMARATE [Suspect]
     Active Substance: BUDESONIDE\FORMOTEROL FUMARATE
     Indication: Product used for unknown indication
     Dosage: UNK
     Route: 055
  82. BUDESONIDE\FORMOTEROL FUMARATE [Suspect]
     Active Substance: BUDESONIDE\FORMOTEROL FUMARATE
     Indication: Product used for unknown indication
     Dosage: DOSAGE TEXT: UNK
     Route: 065
  83. MOMETASONE FUROATE [Suspect]
     Active Substance: MOMETASONE FUROATE
     Indication: Product used for unknown indication
     Dosage: SPRAY, METERED DOSE
     Route: 065
  84. MOMETASONE FUROATE [Suspect]
     Active Substance: MOMETASONE FUROATE
     Indication: Product used for unknown indication
     Dosage: DOSAGE TEXT: SPRAY, METERED DOSE
     Route: 065
  85. MOMETASONE FUROATE [Suspect]
     Active Substance: MOMETASONE FUROATE
     Indication: Product used for unknown indication
     Dosage: UNK (SPRAY, METERED DOSE)
     Route: 065
  86. MOMETASONE FUROATE [Suspect]
     Active Substance: MOMETASONE FUROATE
     Indication: Product used for unknown indication
     Dosage: DOSAGE TEXT: UNK (SPRAY, METERED DOSE)
     Route: 065
  87. ACTONEL [Suspect]
     Active Substance: RISEDRONATE SODIUM
     Indication: Product used for unknown indication
     Dosage: DOSAGE TEXT: 5 MILLIGRAM
     Route: 048
  88. ACTONEL [Suspect]
     Active Substance: RISEDRONATE SODIUM
     Indication: Product used for unknown indication
     Dosage: DOSAGE TEXT: 5 MILLIGRAM
     Route: 048
  89. SITAGLIPTIN [Suspect]
     Active Substance: SITAGLIPTIN
     Indication: Product used for unknown indication
     Dosage: UNK (TABLET)
     Route: 065
  90. SITAGLIPTIN [Suspect]
     Active Substance: SITAGLIPTIN
     Indication: Product used for unknown indication
     Dosage: DOSAGE TEXT: UNK
     Route: 065
  91. SITAGLIPTIN [Suspect]
     Active Substance: SITAGLIPTIN
     Indication: Product used for unknown indication
     Dosage: UNK
     Route: 065
  92. SITAGLIPTIN [Suspect]
     Active Substance: SITAGLIPTIN
     Indication: Product used for unknown indication
     Dosage: DOSAGE TEXT: UNK
     Route: 048
  93. SITAGLIPTIN [Suspect]
     Active Substance: SITAGLIPTIN
     Indication: Product used for unknown indication
     Dosage: UNK
     Route: 048
  94. SITAGLIPTIN [Suspect]
     Active Substance: SITAGLIPTIN
     Indication: Product used for unknown indication
     Dosage: DOSAGE TEXT: UNK (TABLET)
     Route: 065
  95. SITAGLIPTIN [Suspect]
     Active Substance: SITAGLIPTIN
     Indication: Product used for unknown indication
     Dosage: DOSAGE TEXT: UNK
     Route: 065
  96. SITAGLIPTIN [Suspect]
     Active Substance: SITAGLIPTIN
     Indication: Product used for unknown indication
     Dosage: DOSAGE TEXT: UNK (TABLET)
     Route: 065
  97. SITAGLIPTIN PHOSPHATE [Suspect]
     Active Substance: SITAGLIPTIN PHOSPHATE
     Indication: Product used for unknown indication
     Dosage: UNK
     Route: 048
  98. SITAGLIPTIN PHOSPHATE [Suspect]
     Active Substance: SITAGLIPTIN PHOSPHATE
     Indication: Product used for unknown indication
     Dosage: DOSAGE TEXT: UNK
     Route: 065
  99. SITAGLIPTIN PHOSPHATE [Suspect]
     Active Substance: SITAGLIPTIN PHOSPHATE
     Indication: Product used for unknown indication
     Dosage: UNK
     Route: 065
  100. SITAGLIPTIN PHOSPHATE [Suspect]
     Active Substance: SITAGLIPTIN PHOSPHATE
     Indication: Product used for unknown indication
     Dosage: DOSAGE TEXT: UNK
     Route: 065
  101. SITAGLIPTIN PHOSPHATE [Suspect]
     Active Substance: SITAGLIPTIN PHOSPHATE
     Indication: Product used for unknown indication
     Dosage: DOSAGE TEXT: UNK
     Route: 065
  102. NASONEX [Suspect]
     Active Substance: MOMETASONE FUROATE
     Indication: Product used for unknown indication
     Dosage: UNK
     Route: 065
  103. ROSUVASTATIN [Suspect]
     Active Substance: ROSUVASTATIN
     Indication: Product used for unknown indication
     Route: 065
  104. ROSUVASTATIN [Suspect]
     Active Substance: ROSUVASTATIN
     Indication: Product used for unknown indication
     Route: 065
  105. IRON DEXTRAN [Suspect]
     Active Substance: IRON DEXTRAN
     Indication: Product used for unknown indication
     Dosage: UNK
     Route: 065
  106. IRON DEXTRAN [Suspect]
     Active Substance: IRON DEXTRAN
     Indication: Product used for unknown indication
     Dosage: DOSAGE TEXT: UNK
     Route: 065
  107. MOMETASONE [Suspect]
     Active Substance: MOMETASONE
     Indication: Product used for unknown indication
     Dosage: SPRAY, METERED DOSE
     Route: 065
  108. MOMETASONE [Suspect]
     Active Substance: MOMETASONE
     Indication: Product used for unknown indication
     Dosage: DOSAGE TEXT: UNK
     Route: 065
  109. MOMETASONE [Suspect]
     Active Substance: MOMETASONE
     Indication: Product used for unknown indication
     Dosage: UNK
     Route: 065
  110. MOMETASONE [Suspect]
     Active Substance: MOMETASONE
     Indication: Product used for unknown indication
     Dosage: DOSAGE TEXT: SPRAY, METERED DOSE
     Route: 065
  111. DILTIAZEM [Suspect]
     Active Substance: DILTIAZEM
     Indication: Product used for unknown indication
     Dosage: UNK
     Route: 048
  112. DILTIAZEM [Suspect]
     Active Substance: DILTIAZEM
     Indication: Product used for unknown indication
     Dosage: DOSAGE TEXT: UNK
     Route: 065
  113. DILTIAZEM [Suspect]
     Active Substance: DILTIAZEM
     Indication: Product used for unknown indication
     Dosage: UNK
     Route: 065
  114. DILTIAZEM [Suspect]
     Active Substance: DILTIAZEM
     Indication: Product used for unknown indication
     Dosage: DOSAGE TEXT: UNK
     Route: 048
  115. DILTIAZEM [Suspect]
     Active Substance: DILTIAZEM
     Indication: Product used for unknown indication
     Dosage: DOSAGE TEXT: UNK
     Route: 065
  116. INVOKANA [Suspect]
     Active Substance: CANAGLIFLOZIN
     Indication: Product used for unknown indication
     Dosage: UNK
     Route: 048
  117. INVOKANA [Suspect]
     Active Substance: CANAGLIFLOZIN
     Indication: Product used for unknown indication
     Dosage: DOSAGE TEXT: UNK,UNK
     Route: 048
  118. INVOKANA [Suspect]
     Active Substance: CANAGLIFLOZIN
     Indication: Product used for unknown indication
     Dosage: DOSAGE TEXT: UNK
     Route: 048
  119. INVOKANA [Suspect]
     Active Substance: CANAGLIFLOZIN
     Indication: Product used for unknown indication
     Dosage: DOSAGE TEXT: UNK
     Route: 048
  120. INVOKANA [Suspect]
     Active Substance: CANAGLIFLOZIN
     Indication: Product used for unknown indication
     Dosage: DOSAGE TEXT: UNK
     Route: 048
  121. JANUMET [Suspect]
     Active Substance: METFORMIN HYDROCHLORIDE\SITAGLIPTIN PHOSPHATE
     Indication: Product used for unknown indication
     Dosage: UNK (NOT SPECIFIED
     Route: 065
  122. JANUMET [Suspect]
     Active Substance: METFORMIN HYDROCHLORIDE\SITAGLIPTIN PHOSPHATE
     Indication: Product used for unknown indication
     Dosage: DOSAGE TEXT: UNK
     Route: 065
  123. JANUMET [Suspect]
     Active Substance: METFORMIN HYDROCHLORIDE\SITAGLIPTIN PHOSPHATE
     Indication: Product used for unknown indication
     Dosage: UNK
     Route: 065
  124. JANUMET [Suspect]
     Active Substance: METFORMIN HYDROCHLORIDE\SITAGLIPTIN PHOSPHATE
     Indication: Product used for unknown indication
     Dosage: DOSAGE TEXT: UNK
     Route: 065
  125. JANUMET [Suspect]
     Active Substance: METFORMIN HYDROCHLORIDE\SITAGLIPTIN PHOSPHATE
     Indication: Product used for unknown indication
     Dosage: DOSAGE TEXT: UNK (NOT SPECIFIED
     Route: 065
  126. SINGULAIR [Suspect]
     Active Substance: MONTELUKAST SODIUM
     Indication: Product used for unknown indication
     Dosage: UNK
     Route: 048
  127. SINGULAIR [Suspect]
     Active Substance: MONTELUKAST SODIUM
     Indication: Product used for unknown indication
     Dosage: DOSAGE TEXT: UNK
     Route: 048
  128. SINGULAIR [Suspect]
     Active Substance: MONTELUKAST SODIUM
     Indication: Product used for unknown indication
     Dosage: UNK
     Route: 065
  129. SINGULAIR [Suspect]
     Active Substance: MONTELUKAST SODIUM
     Indication: Product used for unknown indication
     Dosage: DOSAGE TEXT: UNK
     Route: 065
  130. CANAGLIFLOZIN\METFORMIN HYDROCHLORIDE [Suspect]
     Active Substance: CANAGLIFLOZIN\METFORMIN HYDROCHLORIDE
     Indication: Product used for unknown indication
     Dosage: UNK
     Route: 065
  131. SYMBICORT [Suspect]
     Active Substance: BUDESONIDE\FORMOTEROL FUMARATE DIHYDRATE
     Indication: Product used for unknown indication
     Dosage: DOSAGE TEXT: UNK, UNK
     Route: 065
  132. SYMBICORT [Suspect]
     Active Substance: BUDESONIDE\FORMOTEROL FUMARATE DIHYDRATE
     Indication: Product used for unknown indication
     Dosage: DOSAGE TEXT: UNK (NOT SPECIFIED
     Route: 055
  133. RISEDRONATE SODIUM [Suspect]
     Active Substance: RISEDRONATE SODIUM
     Indication: Product used for unknown indication
     Dosage: UNK
     Route: 048
  134. RISEDRONATE SODIUM [Suspect]
     Active Substance: RISEDRONATE SODIUM
     Indication: Product used for unknown indication
     Dosage: DOSAGE TEXT: UNK (TABLET)
     Route: 048
  135. RISEDRONATE SODIUM [Suspect]
     Active Substance: RISEDRONATE SODIUM
     Indication: Product used for unknown indication
     Dosage: UNK
     Route: 065
  136. RISEDRONATE SODIUM [Suspect]
     Active Substance: RISEDRONATE SODIUM
     Indication: Product used for unknown indication
     Dosage: DOSAGE TEXT: UNK
     Route: 048
  137. RISEDRONATE SODIUM [Suspect]
     Active Substance: RISEDRONATE SODIUM
     Indication: Product used for unknown indication
     Dosage: UNK(TABLET)
     Route: 048
  138. RISEDRONATE SODIUM [Suspect]
     Active Substance: RISEDRONATE SODIUM
     Indication: Product used for unknown indication
     Dosage: DOSAGE TEXT: UNK(TABLET)
     Route: 048
  139. RISEDRONATE SODIUM [Suspect]
     Active Substance: RISEDRONATE SODIUM
     Indication: Product used for unknown indication
     Dosage: DOSAGE TEXT: 5 MG (TABLET)
     Route: 048
  140. RISEDRONATE SODIUM [Suspect]
     Active Substance: RISEDRONATE SODIUM
     Indication: Product used for unknown indication
     Dosage: UNK (TABLET)
     Route: 048
  141. RISEDRONATE SODIUM [Suspect]
     Active Substance: RISEDRONATE SODIUM
     Indication: Product used for unknown indication
     Dosage: DOSAGE TEXT: UNK
     Route: 065
  142. XOLAIR [Suspect]
     Active Substance: OMALIZUMAB
     Indication: Product used for unknown indication
     Dosage: UNK, UNK
     Route: 065
  143. XOLAIR [Suspect]
     Active Substance: OMALIZUMAB
     Indication: Product used for unknown indication
     Dosage: DOSAGE TEXT: UNK, UNK
     Route: 065
  144. XOLAIR [Suspect]
     Active Substance: OMALIZUMAB
     Indication: Product used for unknown indication
     Dosage: UNK
     Route: 065
  145. XOLAIR [Suspect]
     Active Substance: OMALIZUMAB
     Indication: Product used for unknown indication
     Dosage: DOSAGE TEXT: UNK
     Route: 065
  146. OMALIZUMAB [Suspect]
     Active Substance: OMALIZUMAB
     Indication: Product used for unknown indication
     Dosage: UNK (NOT SPECIFIED)
     Route: 065
  147. OMALIZUMAB [Suspect]
     Active Substance: OMALIZUMAB
     Indication: Product used for unknown indication
     Dosage: DOSAGE TEXT: UNK (NOT SPECIFIED)
     Route: 065
  148. ALBUTEROL [Suspect]
     Active Substance: ALBUTEROL
     Indication: Product used for unknown indication
     Dosage: UNK [METERED-DOSE (AEROSOL)]
     Route: 065
  149. ALBUTEROL [Suspect]
     Active Substance: ALBUTEROL
     Indication: Product used for unknown indication
     Dosage: DOSAGE TEXT: UNK
     Route: 065
  150. ALBUTEROL [Suspect]
     Active Substance: ALBUTEROL
     Indication: Product used for unknown indication
     Dosage: UNK
     Route: 065
  151. ALBUTEROL [Suspect]
     Active Substance: ALBUTEROL
     Indication: Product used for unknown indication
     Dosage: DOSAGE TEXT: UNK [METERED-DOSE (AEROSOL)]
     Route: 065
  152. ALBUTEROL [Suspect]
     Active Substance: ALBUTEROL
     Indication: Product used for unknown indication
     Dosage: UNK (TABLET)
     Route: 065
  153. ALBUTEROL [Suspect]
     Active Substance: ALBUTEROL
     Indication: Product used for unknown indication
     Dosage: DOSAGE TEXT: UNK (TABLET)
     Route: 065
  154. ALBUTEROL [Suspect]
     Active Substance: ALBUTEROL
     Indication: Product used for unknown indication
     Dosage: UNK (NOT SPECIFIED)
     Route: 065
  155. ALBUTEROL [Suspect]
     Active Substance: ALBUTEROL
     Indication: Product used for unknown indication
     Dosage: DOSAGE TEXT: UNK (NOT SPECIFIED)
     Route: 065
  156. CANAGLIFLOZIN [Suspect]
     Active Substance: CANAGLIFLOZIN
     Indication: Product used for unknown indication
     Dosage: UNK
     Route: 065
  157. CANAGLIFLOZIN [Suspect]
     Active Substance: CANAGLIFLOZIN
     Indication: Product used for unknown indication
     Dosage: DOSAGE TEXT: UNK (TABLET)
     Route: 048
  158. CANAGLIFLOZIN [Suspect]
     Active Substance: CANAGLIFLOZIN
     Indication: Product used for unknown indication
     Dosage: UNK
     Route: 048
  159. CANAGLIFLOZIN [Suspect]
     Active Substance: CANAGLIFLOZIN
     Indication: Product used for unknown indication
     Dosage: DOSAGE TEXT: UNK
     Route: 065
  160. CANAGLIFLOZIN [Suspect]
     Active Substance: CANAGLIFLOZIN
     Indication: Product used for unknown indication
     Dosage: UNK(TABLET)
     Route: 065
  161. CANAGLIFLOZIN [Suspect]
     Active Substance: CANAGLIFLOZIN
     Indication: Product used for unknown indication
     Dosage: DOSAGE TEXT: UNK
     Route: 048
  162. CANAGLIFLOZIN [Suspect]
     Active Substance: CANAGLIFLOZIN
     Indication: Product used for unknown indication
     Dosage: UNK (TABLET)
     Route: 048
  163. CANAGLIFLOZIN [Suspect]
     Active Substance: CANAGLIFLOZIN
     Indication: Product used for unknown indication
     Dosage: DOSAGE TEXT: UNK(TABLET)
     Route: 065
  164. FERROUS SULFATE ANHYDROUS [Suspect]
     Active Substance: FERROUS SULFATE ANHYDROUS
     Indication: Product used for unknown indication
     Dosage: UNK
     Route: 065
  165. FERROUS SULFATE ANHYDROUS [Suspect]
     Active Substance: FERROUS SULFATE ANHYDROUS
     Indication: Product used for unknown indication
     Dosage: DOSAGE TEXT: UNK
     Route: 065
  166. FERROUS SULFATE ANHYDROUS [Suspect]
     Active Substance: FERROUS SULFATE ANHYDROUS
     Indication: Product used for unknown indication
     Dosage: DOSAGE TEXT: UNK
     Route: 065
  167. FERROUS SULFATE ANHYDROUS [Suspect]
     Active Substance: FERROUS SULFATE ANHYDROUS
     Indication: Product used for unknown indication
     Dosage: DOSAGE TEXT: UNK
     Route: 065
  168. FERROUS SULFATE ANHYDROUS [Suspect]
     Active Substance: FERROUS SULFATE ANHYDROUS
     Indication: Product used for unknown indication
     Dosage: DOSAGE TEXT: UNK
     Route: 065
  169. PULMICORT TURBUHALER [Suspect]
     Active Substance: BUDESONIDE
     Indication: Product used for unknown indication
     Dosage: UNK
     Route: 050
  170. PULMICORT TURBUHALER [Suspect]
     Active Substance: BUDESONIDE
     Indication: Product used for unknown indication
     Dosage: DOSAGE TEXT: UNK [RESPIRATORY (INHALATION)
     Route: 055
  171. PULMICORT TURBUHALER [Suspect]
     Active Substance: BUDESONIDE
     Indication: Product used for unknown indication
     Dosage: UNK
     Route: 065
  172. PULMICORT TURBUHALER [Suspect]
     Active Substance: BUDESONIDE
     Indication: Product used for unknown indication
     Dosage: DOSAGE TEXT: UNK
     Route: 050
  173. PULMICORT TURBUHALER [Suspect]
     Active Substance: BUDESONIDE
     Indication: Product used for unknown indication
     Dosage: UNK [RESPIRATORY (INHALATION)
     Route: 055
  174. PULMICORT TURBUHALER [Suspect]
     Active Substance: BUDESONIDE
     Indication: Product used for unknown indication
     Dosage: DOSAGE TEXT: UNK
     Route: 065
  175. ALBUTEROL [Suspect]
     Active Substance: ALBUTEROL
     Indication: Product used for unknown indication
     Dosage: UNK
     Route: 065
  176. ALBUTEROL [Suspect]
     Active Substance: ALBUTEROL
     Indication: Product used for unknown indication
     Dosage: DOSAGE TEXT: UNK
     Route: 065
  177. ALBUTEROL [Suspect]
     Active Substance: ALBUTEROL
     Indication: Product used for unknown indication
     Dosage: DOSAGE TEXT: UNK
     Route: 065
  178. FORMOTEROL [Suspect]
     Active Substance: FORMOTEROL
     Indication: Product used for unknown indication
     Dosage: UNK
     Route: 005
  179. FORMOTEROL [Suspect]
     Active Substance: FORMOTEROL
     Indication: Product used for unknown indication
     Dosage: DOSAGE TEXT: UNK
     Route: 005
  180. FORMOTEROL [Suspect]
     Active Substance: FORMOTEROL
     Indication: Product used for unknown indication
     Dosage: UNK [RESPIRATORY (INHALATION)]
     Route: 055
  181. FORMOTEROL [Suspect]
     Active Substance: FORMOTEROL
     Indication: Product used for unknown indication
     Dosage: DOSAGE TEXT: UNK [RESPIRATORY (INHALATION)]
     Route: 055
  182. SYNTHROID [Suspect]
     Active Substance: LEVOTHYROXINE SODIUM
     Indication: Product used for unknown indication
     Dosage: UNK
     Route: 065
  183. SYNTHROID [Suspect]
     Active Substance: LEVOTHYROXINE SODIUM
     Indication: Product used for unknown indication
     Dosage: DOSAGE TEXT: UNK
     Route: 065
  184. BUDESONIDE [Suspect]
     Active Substance: BUDESONIDE
     Indication: Product used for unknown indication
     Dosage: UNK
     Route: 065
  185. BUDESONIDE [Suspect]
     Active Substance: BUDESONIDE
     Indication: Product used for unknown indication
     Dosage: DOSAGE TEXT: UNK
     Route: 065
  186. METFORMIN HYDROCHLORIDE [Suspect]
     Active Substance: METFORMIN HYDROCHLORIDE
     Indication: Product used for unknown indication
     Dosage: DOSAGE TEXT: 500 MILLIGRAM
     Route: 048
  187. METFORMIN HYDROCHLORIDE [Suspect]
     Active Substance: METFORMIN HYDROCHLORIDE
     Indication: Product used for unknown indication
     Dosage: UNK (FILM-COATED TABLET)
     Route: 065
  188. METFORMIN HYDROCHLORIDE [Suspect]
     Active Substance: METFORMIN HYDROCHLORIDE
     Indication: Product used for unknown indication
     Dosage: DOSAGE TEXT: 500 MILLIGRAM
     Route: 048
  189. METFORMIN HYDROCHLORIDE [Suspect]
     Active Substance: METFORMIN HYDROCHLORIDE
     Indication: Product used for unknown indication
     Dosage: UNK
     Route: 065
  190. METFORMIN HYDROCHLORIDE [Suspect]
     Active Substance: METFORMIN HYDROCHLORIDE
     Indication: Product used for unknown indication
     Dosage: DOSAGE TEXT: UNK
     Route: 065
  191. METFORMIN HYDROCHLORIDE [Suspect]
     Active Substance: METFORMIN HYDROCHLORIDE
     Indication: Product used for unknown indication
     Dosage: UNK (NOT SPECIFIED)
     Route: 065
  192. METFORMIN HYDROCHLORIDE [Suspect]
     Active Substance: METFORMIN HYDROCHLORIDE
     Indication: Product used for unknown indication
     Dosage: DOSAGE TEXT: UNK (FILM-COATED TABLET)
     Route: 065
  193. METFORMIN HYDROCHLORIDE [Suspect]
     Active Substance: METFORMIN HYDROCHLORIDE
     Indication: Product used for unknown indication
     Dosage: DOSAGE TEXT: UNK
     Route: 048
  194. METFORMIN HYDROCHLORIDE [Suspect]
     Active Substance: METFORMIN HYDROCHLORIDE
     Indication: Product used for unknown indication
     Dosage: DOSAGE TEXT: UNK
     Route: 065
  195. METFORMIN HYDROCHLORIDE [Suspect]
     Active Substance: METFORMIN HYDROCHLORIDE
     Indication: Product used for unknown indication
     Dosage: DOSAGE TEXT: UNK
     Route: 065
  196. METFORMIN HYDROCHLORIDE [Suspect]
     Active Substance: METFORMIN HYDROCHLORIDE
     Indication: Product used for unknown indication
     Dosage: DOSAGE TEXT: UNK
     Route: 065
  197. METFORMIN HYDROCHLORIDE [Suspect]
     Active Substance: METFORMIN HYDROCHLORIDE
     Indication: Product used for unknown indication
     Dosage: DOSAGE TEXT: UNK
     Route: 065
  198. METFORMIN HYDROCHLORIDE [Suspect]
     Active Substance: METFORMIN HYDROCHLORIDE
     Indication: Product used for unknown indication
     Dosage: DOSAGE TEXT: UNK (NOT SPECIFIED)
     Route: 065
  199. METFORMIN HYDROCHLORIDE [Suspect]
     Active Substance: METFORMIN HYDROCHLORIDE
     Indication: Product used for unknown indication
     Dosage: UNK
     Route: 048
  200. METFORMIN HYDROCHLORIDE [Suspect]
     Active Substance: METFORMIN HYDROCHLORIDE
     Indication: Product used for unknown indication
     Dosage: DOSAGE TEXT: UNK (NOT SPECIFIED)
     Route: 065
  201. FORMOTEROL FUMARATE [Suspect]
     Active Substance: FORMOTEROL FUMARATE
     Indication: Product used for unknown indication
     Dosage: UNK
     Route: 065
  202. FORMOTEROL FUMARATE [Suspect]
     Active Substance: FORMOTEROL FUMARATE
     Indication: Product used for unknown indication
     Dosage: DOSAGE TEXT: UNK
     Route: 065
  203. FORMOTEROL FUMARATE [Suspect]
     Active Substance: FORMOTEROL FUMARATE
     Indication: Product used for unknown indication
     Dosage: UNK [RESPIRATORY (INHALATION)]
     Route: 055
  204. FORMOTEROL FUMARATE [Suspect]
     Active Substance: FORMOTEROL FUMARATE
     Indication: Product used for unknown indication
     Dosage: DOSAGE TEXT: UNK [RESPIRATORY (INHALATION)]
     Route: 055
  205. MONTELUKAST SODIUM [Suspect]
     Active Substance: MONTELUKAST SODIUM
     Indication: Product used for unknown indication
     Dosage: UNK
     Route: 065
  206. MONTELUKAST SODIUM [Suspect]
     Active Substance: MONTELUKAST SODIUM
     Indication: Product used for unknown indication
     Dosage: DOSAGE TEXT: UNK
     Route: 065
  207. MONTELUKAST SODIUM [Suspect]
     Active Substance: MONTELUKAST SODIUM
     Indication: Product used for unknown indication
     Dosage: UNK
     Route: 048
  208. MONTELUKAST SODIUM [Suspect]
     Active Substance: MONTELUKAST SODIUM
     Indication: Product used for unknown indication
     Dosage: DOSAGE TEXT: FILM-COATED TABLET
     Route: 048
  209. MONTELUKAST SODIUM [Suspect]
     Active Substance: MONTELUKAST SODIUM
     Indication: Product used for unknown indication
     Dosage: FILM-COATED TABLET
     Route: 048
  210. MONTELUKAST SODIUM [Suspect]
     Active Substance: MONTELUKAST SODIUM
     Indication: Product used for unknown indication
     Dosage: DOSAGE TEXT: UNK
     Route: 048
  211. METFORMIN HYDROCHLORIDE\SITAGLIPTIN PHOSPHATE [Suspect]
     Active Substance: METFORMIN HYDROCHLORIDE\SITAGLIPTIN PHOSPHATE
     Indication: Product used for unknown indication
     Dosage: UNK
     Route: 048
  212. METFORMIN HYDROCHLORIDE\SITAGLIPTIN PHOSPHATE [Suspect]
     Active Substance: METFORMIN HYDROCHLORIDE\SITAGLIPTIN PHOSPHATE
     Indication: Product used for unknown indication
     Dosage: DOSAGE TEXT: UNK
     Route: 065
  213. METFORMIN HYDROCHLORIDE\SITAGLIPTIN PHOSPHATE [Suspect]
     Active Substance: METFORMIN HYDROCHLORIDE\SITAGLIPTIN PHOSPHATE
     Indication: Product used for unknown indication
     Dosage: UNK
     Route: 065
  214. METFORMIN HYDROCHLORIDE\SITAGLIPTIN PHOSPHATE [Suspect]
     Active Substance: METFORMIN HYDROCHLORIDE\SITAGLIPTIN PHOSPHATE
     Indication: Product used for unknown indication
     Dosage: DOSAGE TEXT: UNK
     Route: 065
  215. METFORMIN HYDROCHLORIDE\SITAGLIPTIN PHOSPHATE [Suspect]
     Active Substance: METFORMIN HYDROCHLORIDE\SITAGLIPTIN PHOSPHATE
     Indication: Product used for unknown indication
     Dosage: DOSAGE TEXT: UNK
     Route: 048
  216. METFORMIN HYDROCHLORIDE\SITAGLIPTIN PHOSPHATE [Suspect]
     Active Substance: METFORMIN HYDROCHLORIDE\SITAGLIPTIN PHOSPHATE
     Indication: Product used for unknown indication
     Dosage: DOSAGE TEXT: UNK
     Route: 048
  217. METFORMIN HYDROCHLORIDE\SITAGLIPTIN PHOSPHATE [Suspect]
     Active Substance: METFORMIN HYDROCHLORIDE\SITAGLIPTIN PHOSPHATE
     Indication: Product used for unknown indication
     Dosage: DOSAGE TEXT: UNK
     Route: 065
  218. METFORMIN HYDROCHLORIDE\SITAGLIPTIN PHOSPHATE [Suspect]
     Active Substance: METFORMIN HYDROCHLORIDE\SITAGLIPTIN PHOSPHATE
     Indication: Product used for unknown indication
     Dosage: DOSAGE TEXT: UNK
     Route: 065
  219. METFORMIN HYDROCHLORIDE\SITAGLIPTIN PHOSPHATE [Suspect]
     Active Substance: METFORMIN HYDROCHLORIDE\SITAGLIPTIN PHOSPHATE
     Indication: Product used for unknown indication
     Dosage: DOSAGE TEXT: UNK
     Route: 065
  220. METFORMIN HYDROCHLORIDE\SITAGLIPTIN PHOSPHATE [Suspect]
     Active Substance: METFORMIN HYDROCHLORIDE\SITAGLIPTIN PHOSPHATE
     Indication: Product used for unknown indication
     Dosage: UNK MONOHYDRATE
     Route: 065
  221. METFORMIN HYDROCHLORIDE\SITAGLIPTIN PHOSPHATE [Suspect]
     Active Substance: METFORMIN HYDROCHLORIDE\SITAGLIPTIN PHOSPHATE
     Indication: Product used for unknown indication
     Dosage: DOSAGE TEXT: UNK
     Route: 065
  222. RISEDRONIC ACID [Suspect]
     Active Substance: RISEDRONIC ACID
     Indication: Product used for unknown indication
     Dosage: DOSAGE TEXT: 5.0 MILLIGRAM
     Route: 048
  223. RISEDRONIC ACID [Suspect]
     Active Substance: RISEDRONIC ACID
     Indication: Product used for unknown indication
     Dosage: DOSAGE TEXT: 5 MILLIGRAM
     Route: 065
  224. RISEDRONIC ACID [Suspect]
     Active Substance: RISEDRONIC ACID
     Indication: Product used for unknown indication
     Dosage: DOSAGE TEXT: 5 MILLIGRAM
     Route: 065
  225. VENLAFAXINE [Suspect]
     Active Substance: VENLAFAXINE HYDROCHLORIDE
     Indication: Product used for unknown indication
     Dosage: UNK
     Route: 065
  226. VENLAFAXINE [Suspect]
     Active Substance: VENLAFAXINE HYDROCHLORIDE
     Indication: Product used for unknown indication
     Dosage: DOSAGE TEXT: UNK
     Route: 065
  227. PREVACID [Suspect]
     Active Substance: LANSOPRAZOLE
     Indication: Product used for unknown indication
     Dosage: UNK
     Route: 048
  228. PREVACID [Suspect]
     Active Substance: LANSOPRAZOLE
     Indication: Product used for unknown indication
     Dosage: DOSAGE TEXT: UNK
     Route: 065
  229. PREVACID [Suspect]
     Active Substance: LANSOPRAZOLE
     Indication: Product used for unknown indication
     Dosage: DOSAGE TEXT: DAILY DOSE: DELAYED RELEASE CAPSULE
     Route: 048
  230. PREVACID [Suspect]
     Active Substance: LANSOPRAZOLE
     Indication: Product used for unknown indication
     Dosage: DOSAGE TEXT: UNK
     Route: 048
  231. PREVACID [Suspect]
     Active Substance: LANSOPRAZOLE
     Indication: Product used for unknown indication
     Dosage: DOSAGE TEXT: DAILY DOSE: DELAYED RELEASE CAPSULE
     Route: 048
  232. PREVACID [Suspect]
     Active Substance: LANSOPRAZOLE
     Indication: Product used for unknown indication
     Dosage: DOSAGE TEXT: UNK
     Route: 048
  233. PREVACID [Suspect]
     Active Substance: LANSOPRAZOLE
     Indication: Product used for unknown indication
     Dosage: DOSAGE TEXT: FORMULATION: DELAYED RELEASE CAPSULE
     Route: 048
  234. PREVACID [Suspect]
     Active Substance: LANSOPRAZOLE
     Indication: Product used for unknown indication
     Dosage: DOSAGE TEXT: UNK
     Route: 048
  235. PREVACID [Suspect]
     Active Substance: LANSOPRAZOLE
     Indication: Product used for unknown indication
     Dosage: DOSAGE TEXT: FORMULATION: DELAYED RELEASE CAPSULE
     Route: 048
  236. PREVACID [Suspect]
     Active Substance: LANSOPRAZOLE
     Indication: Product used for unknown indication
     Dosage: DOSAGE TEXT: FORMULATION: DELAYED RELEASE CAPSULE
     Route: 048
  237. PREVACID [Suspect]
     Active Substance: LANSOPRAZOLE
     Indication: Product used for unknown indication
     Dosage: DOSAGE TEXT: UNK
     Route: 048
  238. PREVACID [Suspect]
     Active Substance: LANSOPRAZOLE
     Indication: Product used for unknown indication
     Dosage: DOSAGE TEXT: DELAYED RELEASE CAPSULE
     Route: 048
  239. PREVACID [Suspect]
     Active Substance: LANSOPRAZOLE
     Indication: Product used for unknown indication
     Dosage: DOSAGE TEXT: UNK
     Route: 048
  240. PREVACID [Suspect]
     Active Substance: LANSOPRAZOLE
     Indication: Product used for unknown indication
     Dosage: DOSAGE TEXT: FORMULATION: DELAYED RELEASE CAPSULE
     Route: 048
  241. PREVACID [Suspect]
     Active Substance: LANSOPRAZOLE
     Indication: Product used for unknown indication
     Dosage: DOSAGE TEXT: UNK
     Route: 048
  242. PREVACID [Suspect]
     Active Substance: LANSOPRAZOLE
     Indication: Product used for unknown indication
     Dosage: DOSAGE TEXT: UNK
     Route: 048
  243. PREVACID [Suspect]
     Active Substance: LANSOPRAZOLE
     Indication: Product used for unknown indication
     Dosage: DOSAGE TEXT: DAILY DOSE: DELAYED RELEASE CAPSULE
     Route: 048
  244. PREVACID [Suspect]
     Active Substance: LANSOPRAZOLE
     Indication: Product used for unknown indication
     Dosage: DOSAGE TEXT: UNK
     Route: 065
  245. ALBUTEROL SULFATE [Suspect]
     Active Substance: ALBUTEROL SULFATE
     Indication: Product used for unknown indication
     Dosage: UNK
     Route: 065
  246. LANSOPRAZOLE [Suspect]
     Active Substance: LANSOPRAZOLE
     Indication: Product used for unknown indication
     Dosage: DOSAGE TEXT: UNK
     Route: 065
  247. METFORMIN [Suspect]
     Active Substance: METFORMIN HYDROCHLORIDE
     Indication: Product used for unknown indication
     Dosage: DOSAGE TEXT: 500 MILLIGRAM
     Route: 065
  248. METFORMIN [Suspect]
     Active Substance: METFORMIN HYDROCHLORIDE
     Indication: Product used for unknown indication
     Dosage: UNK
     Route: 048
  249. METFORMIN [Suspect]
     Active Substance: METFORMIN HYDROCHLORIDE
     Indication: Product used for unknown indication
     Dosage: DOSAGE TEXT: UNK
     Route: 065
  250. METFORMIN [Suspect]
     Active Substance: METFORMIN HYDROCHLORIDE
     Indication: Product used for unknown indication
     Dosage: UNK
     Route: 065
  251. METFORMIN [Suspect]
     Active Substance: METFORMIN HYDROCHLORIDE
     Indication: Product used for unknown indication
     Dosage: DOSAGE TEXT: UNK
     Route: 048
  252. DILTIAZEM HYDROCHLORIDE [Suspect]
     Active Substance: DILTIAZEM HYDROCHLORIDE
     Indication: Product used for unknown indication
     Dosage: UNK
     Route: 065
  253. DILTIAZEM HYDROCHLORIDE [Suspect]
     Active Substance: DILTIAZEM HYDROCHLORIDE
     Indication: Product used for unknown indication
     Dosage: DOSAGE TEXT: UNK
     Route: 048
  254. DILTIAZEM HYDROCHLORIDE [Suspect]
     Active Substance: DILTIAZEM HYDROCHLORIDE
     Indication: Product used for unknown indication
     Dosage: UNK
     Route: 048
  255. DILTIAZEM HYDROCHLORIDE [Suspect]
     Active Substance: DILTIAZEM HYDROCHLORIDE
     Indication: Product used for unknown indication
     Dosage: DOSAGE TEXT: UNK
     Route: 048
  256. DILTIAZEM HYDROCHLORIDE [Suspect]
     Active Substance: DILTIAZEM HYDROCHLORIDE
     Indication: Product used for unknown indication
     Dosage: DOSAGE TEXT: UNK
     Route: 048
  257. ALBUTEROL [Suspect]
     Active Substance: ALBUTEROL
     Indication: Product used for unknown indication
     Dosage: UNK
     Route: 065
  258. ROSUVASTATIN [Suspect]
     Active Substance: ROSUVASTATIN
     Indication: Product used for unknown indication
     Dosage: UNK
     Route: 065
  259. ROSUVASTATIN [Suspect]
     Active Substance: ROSUVASTATIN
     Indication: Product used for unknown indication
     Dosage: UNK(TABLET)
     Route: 065
  260. ROPINIROLE [Suspect]
     Active Substance: ROPINIROLE
     Indication: Product used for unknown indication
     Dosage: UNK
     Route: 065
  261. METFORMIN HYDROCHLORIDE\SITAGLIPTIN PHOSPHATE [Suspect]
     Active Substance: METFORMIN HYDROCHLORIDE\SITAGLIPTIN PHOSPHATE
     Indication: Product used for unknown indication
     Dosage: UNK
     Route: 065
  262. PREVACID [Suspect]
     Active Substance: LANSOPRAZOLE
     Indication: Product used for unknown indication
     Dosage: UNK
     Route: 048
  263. PREVACID [Suspect]
     Active Substance: LANSOPRAZOLE
     Indication: Product used for unknown indication
     Dosage: UNK
     Route: 065
  264. PREVACID [Suspect]
     Active Substance: LANSOPRAZOLE
     Indication: Product used for unknown indication
     Dosage: DELAYED RELEASE CAPSULE
     Route: 048
  265. PREVACID [Suspect]
     Active Substance: LANSOPRAZOLE
     Indication: Product used for unknown indication
     Dosage: FORMULATION: DELAYED RELEASE CAPSULE
     Route: 048
  266. PREVACID [Suspect]
     Active Substance: LANSOPRAZOLE
     Indication: Product used for unknown indication
     Dosage: DAILY DOSE: DELAYED RELEASE CAPSULE
     Route: 048
  267. ROSUVASTATIN CALCIUM [Suspect]
     Active Substance: ROSUVASTATIN CALCIUM
     Indication: Product used for unknown indication
     Dosage: UNK
     Route: 065
  268. ROSUVASTATIN CALCIUM [Suspect]
     Active Substance: ROSUVASTATIN CALCIUM
     Indication: Product used for unknown indication
     Dosage: UNK (FILM-COATED TABLET)
     Route: 048
  269. ROSUVASTATIN CALCIUM [Suspect]
     Active Substance: ROSUVASTATIN CALCIUM
     Indication: Product used for unknown indication
     Dosage: UNK (TABLE)
     Route: 065
  270. ROSUVASTATIN CALCIUM [Suspect]
     Active Substance: ROSUVASTATIN CALCIUM
     Indication: Product used for unknown indication
     Dosage: UNK
     Route: 048
  271. ROSUVASTATIN CALCIUM [Suspect]
     Active Substance: ROSUVASTATIN CALCIUM
     Indication: Product used for unknown indication
     Dosage: UNK (TABLE)
     Route: 048
  272. ROSUVASTATIN CALCIUM [Suspect]
     Active Substance: ROSUVASTATIN CALCIUM
     Indication: Product used for unknown indication
     Dosage: NK (FILM-COATED TABLET)
     Route: 065
  273. SYMBICORT [Suspect]
     Active Substance: BUDESONIDE\FORMOTEROL FUMARATE DIHYDRATE
     Indication: Product used for unknown indication
     Dosage: UNK, UNK
     Route: 065
  274. SYMBICORT [Suspect]
     Active Substance: BUDESONIDE\FORMOTEROL FUMARATE DIHYDRATE
     Indication: Product used for unknown indication
     Dosage: UNK (NOT SPECIFIED, TURBUHALER
     Route: 055
  275. METFORMIN HYDROCHLORIDE [Suspect]
     Active Substance: METFORMIN HYDROCHLORIDE
     Indication: Product used for unknown indication
     Dosage: UNK
     Route: 065
  276. CANAGLIFLOZIN\METFORMIN HYDROCHLORIDE [Suspect]
     Active Substance: CANAGLIFLOZIN\METFORMIN HYDROCHLORIDE
     Indication: Product used for unknown indication
     Dosage: UNK
     Route: 065
  277. CANAGLIFLOZIN [Suspect]
     Active Substance: CANAGLIFLOZIN
     Indication: Product used for unknown indication
     Route: 065
  278. IRON [Suspect]
     Active Substance: IRON
     Indication: Product used for unknown indication
     Dosage: UNK
     Route: 065

REACTIONS (5)
  - Gastrooesophageal reflux disease [Unknown]
  - Hyperglycaemia [Unknown]
  - Type 2 diabetes mellitus [Unknown]
  - Asthma [Unknown]
  - Full blood count abnormal [Unknown]
